FAERS Safety Report 24402820 (Version 1)
Quarter: 2024Q4

REPORT INFORMATION
  Report Type: Spontaneous
  Country: ZA (occurrence: ZA)
  Receive Date: 20241007
  Receipt Date: 20241007
  Transmission Date: 20250114
  Serious: Yes (Hospitalization, Other)
  Sender: ALEXION PHARMACEUTICALS
  Company Number: ZA-AstraZeneca-CH-00710221A

PATIENT
  Age: 76 Year

DRUGS (36)
  1. DAPAGLIFLOZIN [Suspect]
     Active Substance: DAPAGLIFLOZIN
     Indication: Diabetes mellitus
     Dosage: 10 MILLIGRAM
  2. DAPAGLIFLOZIN [Suspect]
     Active Substance: DAPAGLIFLOZIN
     Dosage: 10 MILLIGRAM
  3. DAPAGLIFLOZIN [Suspect]
     Active Substance: DAPAGLIFLOZIN
     Dosage: 10 MILLIGRAM
  4. DAPAGLIFLOZIN [Suspect]
     Active Substance: DAPAGLIFLOZIN
     Dosage: 10 MILLIGRAM
  5. CARVEDILOL [Concomitant]
     Active Substance: CARVEDILOL
     Indication: Hypertension
  6. CARVEDILOL [Concomitant]
     Active Substance: CARVEDILOL
  7. CARVEDILOL [Concomitant]
     Active Substance: CARVEDILOL
  8. CARVEDILOL [Concomitant]
     Active Substance: CARVEDILOL
  9. DYNA-INDAPAMIDE SR [Concomitant]
     Indication: Hypertension
  10. DYNA-INDAPAMIDE SR [Concomitant]
  11. DYNA-INDAPAMIDE SR [Concomitant]
  12. DYNA-INDAPAMIDE SR [Concomitant]
  13. GLICLAZIDE [Concomitant]
     Active Substance: GLICLAZIDE
     Indication: Diabetes mellitus
  14. GLICLAZIDE [Concomitant]
     Active Substance: GLICLAZIDE
  15. GLICLAZIDE [Concomitant]
     Active Substance: GLICLAZIDE
  16. GLICLAZIDE [Concomitant]
     Active Substance: GLICLAZIDE
  17. ACETAMINOPHEN\CODEINE\IBUPROFEN [Concomitant]
     Active Substance: ACETAMINOPHEN\CODEINE\IBUPROFEN
  18. ACETAMINOPHEN\CODEINE\IBUPROFEN [Concomitant]
     Active Substance: ACETAMINOPHEN\CODEINE\IBUPROFEN
  19. ACETAMINOPHEN\CODEINE\IBUPROFEN [Concomitant]
     Active Substance: ACETAMINOPHEN\CODEINE\IBUPROFEN
  20. ACETAMINOPHEN\CODEINE\IBUPROFEN [Concomitant]
     Active Substance: ACETAMINOPHEN\CODEINE\IBUPROFEN
  21. DICLOFENAC SODIUM [Concomitant]
     Active Substance: DICLOFENAC SODIUM
  22. DICLOFENAC SODIUM [Concomitant]
     Active Substance: DICLOFENAC SODIUM
  23. DICLOFENAC SODIUM [Concomitant]
     Active Substance: DICLOFENAC SODIUM
  24. DICLOFENAC SODIUM [Concomitant]
     Active Substance: DICLOFENAC SODIUM
  25. ACETAMINOPHEN\ORPHENADRINE CITRATE [Concomitant]
     Active Substance: ACETAMINOPHEN\ORPHENADRINE CITRATE
  26. ACETAMINOPHEN\ORPHENADRINE CITRATE [Concomitant]
     Active Substance: ACETAMINOPHEN\ORPHENADRINE CITRATE
  27. ACETAMINOPHEN\ORPHENADRINE CITRATE [Concomitant]
     Active Substance: ACETAMINOPHEN\ORPHENADRINE CITRATE
  28. ACETAMINOPHEN\ORPHENADRINE CITRATE [Concomitant]
     Active Substance: ACETAMINOPHEN\ORPHENADRINE CITRATE
  29. FERROUS FORTE SOMAL [Concomitant]
  30. FERROUS FORTE SOMAL [Concomitant]
  31. FERROUS FORTE SOMAL [Concomitant]
  32. FERROUS FORTE SOMAL [Concomitant]
  33. NICOTINAMIDE [Concomitant]
     Active Substance: NIACINAMIDE
     Route: 065
  34. NICOTINAMIDE [Concomitant]
     Active Substance: NIACINAMIDE
  35. NICOTINAMIDE [Concomitant]
     Active Substance: NIACINAMIDE
     Route: 065
  36. NICOTINAMIDE [Concomitant]
     Active Substance: NIACINAMIDE

REACTIONS (1)
  - Neoplasm malignant [Unknown]
